FAERS Safety Report 8072323-9 (Version None)
Quarter: 2012Q1

REPORT INFORMATION
  Report Type: 
  Country: None (occurrence: None)
  Receive Date: 20120126
  Receipt Date: 20120116
  Transmission Date: 20120608
  Serious: Yes (Other)
  Sender: FDA-Public Use
  Company Number: US-AMGEN-USASP2012002947

PATIENT
  Age: 50 Year
  Sex: Male

DRUGS (1)
  1. ENBREL [Suspect]
     Indication: RHEUMATOID ARTHRITIS
     Dosage: 50 MG, QWK
     Dates: start: 20120114

REACTIONS (6)
  - HYPOAESTHESIA [None]
  - DIZZINESS [None]
  - MYALGIA [None]
  - ASTHENIA [None]
  - VOMITING [None]
  - NAUSEA [None]
